FAERS Safety Report 9106977 (Version 1)
Quarter: 2013Q1

REPORT INFORMATION
  Report Type: Report from Study
  Country: US (occurrence: US)
  Receive Date: 20130221
  Receipt Date: 20130221
  Transmission Date: 20140127
  Serious: Yes (Hospitalization)
  Sender: FDA-Public Use
  Company Number: US-GENZYME-MOZO-1000809

PATIENT
  Age: 13 Year
  Sex: Female
  Weight: 37.4 kg

DRUGS (13)
  1. MOZOBIL [Suspect]
     Indication: HAEMATOPOIETIC STEM CELL MOBILISATION
     Dosage: 9 MG, QD
     Route: 042
     Dates: start: 20121110
  2. MOZOBIL [Suspect]
     Indication: B-CELL TYPE ACUTE LEUKAEMIA
  3. FLUDARA [Suspect]
     Indication: BONE MARROW CONDITIONING REGIMEN
     Dosage: UNK
     Route: 065
     Dates: start: 201211
  4. FLUDARA [Suspect]
     Indication: B-CELL TYPE ACUTE LEUKAEMIA
  5. THYMOGLOBULIN [Suspect]
     Indication: BONE MARROW CONDITIONING REGIMEN
     Dosage: UNK
     Route: 065
     Dates: start: 201211
  6. THYMOGLOBULIN [Suspect]
     Indication: B-CELL TYPE ACUTE LEUKAEMIA
  7. THIOTEPA [Suspect]
     Indication: BONE MARROW CONDITIONING REGIMEN
     Dosage: UNK
     Route: 065
     Dates: start: 201211
  8. THIOTEPA [Suspect]
     Indication: B-CELL TYPE ACUTE LEUKAEMIA
  9. MELPHALAN [Suspect]
     Indication: BONE MARROW CONDITIONING REGIMEN
     Dosage: UNK
     Route: 065
     Dates: start: 201211
  10. MELPHALAN [Suspect]
     Indication: B-CELL TYPE ACUTE LEUKAEMIA
  11. AMLODIPINE [Concomitant]
     Indication: HYPERTENSION
     Dosage: 2.5 MG, UNK
     Route: 048
     Dates: start: 20121208
  12. CIDOFOVIR [Concomitant]
     Indication: ANTIVIRAL TREATMENT
     Dosage: 200 MG, UNK
     Route: 042
     Dates: start: 20121127, end: 20121222
  13. VORICONAZOLE [Concomitant]
     Indication: ANTIFUNGAL TREATMENT
     Dosage: 300 MG, UNK
     Route: 048
     Dates: start: 20121115, end: 20121222

REACTIONS (2)
  - Constipation [Recovered/Resolved]
  - Pyrexia [Recovered/Resolved]
